FAERS Safety Report 5735599-6 (Version None)
Quarter: 2008Q2

REPORT INFORMATION
  Report Type: 
  Country: None (occurrence: None)
  Receive Date: 20080512
  Receipt Date: 20080428
  Transmission Date: 20081010
  Serious: Yes (Life-Threatening, Hospitalization)
  Sender: FDA-Public Use
  Company Number: JP-PFIZER INC-2008031546

PATIENT
  Sex: Female
  Weight: 53.8 kg

DRUGS (4)
  1. AMLODIN [Suspect]
     Indication: HYPERTENSION
     Route: 048
     Dates: start: 20070201, end: 20070821
  2. LOSARTAN POTASSIUM AND HYDROCHLOROTHIAZIDE [Suspect]
     Indication: HYPERTENSION
     Route: 048
     Dates: start: 20070201, end: 20070528
  3. ALOSENN [Suspect]
     Indication: CONSTIPATION
     Route: 048
     Dates: start: 20070201, end: 20070528
  4. DIOVANE [Suspect]
     Indication: HYPERTENSION
     Route: 048
     Dates: start: 20070528, end: 20070821

REACTIONS (1)
  - TOXIC EPIDERMAL NECROLYSIS [None]
